FAERS Safety Report 6590111-7 (Version None)
Quarter: 2010Q1

REPORT INFORMATION
  Report Type: 
  Country: None (occurrence: None)
  Receive Date: 20100203
  Receipt Date: 20090213
  Transmission Date: 20100710
  Serious: Yes (Other)
  Sender: FDA-Public Use
  Company Number: PROG00209000838

PATIENT
  Age: 59 Year
  Sex: Female
  Weight: 68 kg

DRUGS (3)
  1. PROMETRIUM [Suspect]
     Indication: HORMONE REPLACEMENT THERAPY
     Dosage: 100 MILLIGRAM(S) QD ORAL DAILY DOSE: 100 MILLIGRAM(S), 100 MILLIGRAM(S) QD ORAL DAILY DOSE: 100 MILL
     Route: 048
     Dates: start: 20010101, end: 20070101
  2. PROMETRIUM [Suspect]
     Indication: HORMONE REPLACEMENT THERAPY
     Dosage: 100 MILLIGRAM(S) QD ORAL DAILY DOSE: 100 MILLIGRAM(S), 100 MILLIGRAM(S) QD ORAL DAILY DOSE: 100 MILL
     Route: 048
     Dates: start: 20090202, end: 20090206
  3. VIVELLE PATCH (ESTRADIOL) [Concomitant]

REACTIONS (2)
  - DEPRESSION [None]
  - SUICIDAL IDEATION [None]
